FAERS Safety Report 21143406 (Version 2)
Quarter: 2022Q3

REPORT INFORMATION
  Report Type: Spontaneous
  Country: US (occurrence: US)
  Receive Date: 20220728
  Receipt Date: 20220810
  Transmission Date: 20221027
  Serious: Yes (Hospitalization)
  Sender: FDA-Public Use
  Company Number: US-TEVA-2022-US-2057860

PATIENT
  Age: 36 Year
  Sex: Male

DRUGS (9)
  1. ARIPIPRAZOLE [Interacting]
     Active Substance: ARIPIPRAZOLE
     Indication: Schizoaffective disorder bipolar type
     Dosage: 25 MILLIGRAM DAILY;
     Route: 065
  2. ISONIAZID [Interacting]
     Active Substance: ISONIAZID
     Indication: Latent tuberculosis
     Dosage: 300 MILLIGRAM DAILY;
     Route: 065
  3. LORAZEPAM [Suspect]
     Active Substance: LORAZEPAM
     Indication: Schizoaffective disorder bipolar type
     Dosage: 4 MILLIGRAM DAILY;
     Route: 065
  4. LORAZEPAM [Suspect]
     Active Substance: LORAZEPAM
     Dosage: 2 MILLIGRAM DAILY;
     Route: 065
  5. LORAZEPAM [Suspect]
     Active Substance: LORAZEPAM
     Dosage: 3 MILLIGRAM DAILY;
     Route: 065
  6. CLOZAPINE [Concomitant]
     Active Substance: CLOZAPINE
     Indication: Schizoaffective disorder bipolar type
     Dosage: 250 MILLIGRAM DAILY;
     Route: 065
  7. CLOZAPINE [Concomitant]
     Active Substance: CLOZAPINE
     Dosage: 300 MILLIGRAM DAILY;
     Route: 065
  8. VALPROIC ACID [Concomitant]
     Active Substance: VALPROIC ACID
     Indication: Schizoaffective disorder bipolar type
     Dosage: 1500 MILLIGRAM DAILY;
     Route: 065
  9. PYRIDOXINE [Concomitant]
     Active Substance: PYRIDOXINE
     Indication: Latent tuberculosis
     Dosage: 50 MILLIGRAM DAILY;
     Route: 065

REACTIONS (5)
  - Agitation [Recovered/Resolved]
  - Psychotic disorder [Recovered/Resolved]
  - Anxiety [Recovered/Resolved]
  - Rebound effect [Recovered/Resolved]
  - Drug interaction [Recovered/Resolved]
